FAERS Safety Report 14257487 (Version 2)
Quarter: 2017Q4

REPORT INFORMATION
  Report Type: Spontaneous
  Country: US (occurrence: US)
  Receive Date: 20171207
  Receipt Date: 20171220
  Transmission Date: 20180321
  Serious: Yes (Hospitalization, Other)
  Sender: FDA-Public Use
  Company Number: US-AMGEN-USASP2017179670

PATIENT
  Age: 72 Year
  Sex: Female

DRUGS (2)
  1. SENSIPAR [Suspect]
     Active Substance: CINACALCET HYDROCHLORIDE
     Indication: HYPERPARATHYROIDISM PRIMARY
     Dosage: 60 MG, BID
     Route: 065
     Dates: start: 20171121
  2. SENSIPAR [Suspect]
     Active Substance: CINACALCET HYDROCHLORIDE
     Indication: HYPERCALCAEMIA

REACTIONS (3)
  - Meningitis [Unknown]
  - Off label use [Unknown]
  - Bradycardia [Unknown]

NARRATIVE: CASE EVENT DATE: 201711
